FAERS Safety Report 8901735 (Version 1)
Quarter: 2012Q4

REPORT INFORMATION
  Report Type: Spontaneous
  Country: US (occurrence: None)
  Receive Date: 20121105
  Receipt Date: 20121105
  Transmission Date: 20130627
  Serious: Yes (Other)
  Sender: FDA-Public Use
  Company Number: E2B_00000447

PATIENT
  Age: 63 Year
  Sex: Female
  Weight: 45.36 kg

DRUGS (7)
  1. LEVETIRACETAM TABLETS 1000MG (LEVETIRACETAM) [Suspect]
     Indication: SEIZURE
     Dosage: (1000 mg, 2 in 1 D)
     Route: 048
  2. LEVETIRACETAM TABLETS 1000MG (LEVETIRACETAM) [Suspect]
     Indication: SEIZURE
     Dosage: 1000 mg, 2 in 1 D
     Route: 048
  3. DEXAMETHASONE (DECADRON) (UNKNOWN) [Concomitant]
  4. ESCITALOPRAM (TABLETS) [Concomitant]
  5. PREDNISONE (TABLETS) [Concomitant]
  6. POTASSIUM (UNKNOWN) [Concomitant]
  7. SODIUM (UNKNOWN) [Concomitant]

REACTIONS (3)
  - Somnolence [None]
  - Speech disorder [None]
  - Hypersomnia [None]
